FAERS Safety Report 15276140 (Version 1)
Quarter: 2018Q3

REPORT INFORMATION
  Report Type: Spontaneous
  Country: US (occurrence: US)
  Receive Date: 20180727
  Receipt Date: 20180727
  Transmission Date: 20181010
  Serious: Yes (Death)
  Sender: FDA-Public Use
  Company Number: None

PATIENT
  Age: 58 Year
  Sex: Male

DRUGS (17)
  1. IPRATROPIUM [Concomitant]
     Active Substance: IPRATROPIUM
  2. METOPROLOL SUCCINATE. [Concomitant]
     Active Substance: METOPROLOL SUCCINATE
  3. NYSTATIN TOPICAL [Concomitant]
  4. PIPERACILLIN/TAZOBACTAM [Concomitant]
     Active Substance: PIPERACILLIN SODIUM\TAZOBACTAM SODIUM
  5. ALBUTEROL. [Concomitant]
     Active Substance: ALBUTEROL
  6. LACTATED RINGERS SOLUTION [Concomitant]
     Active Substance: CALCIUM CHLORIDE\POTASSIUM CHLORIDE\SODIUM CHLORIDE\SODIUM LACTATE
  7. SODIUM CHLORIDE. [Concomitant]
     Active Substance: SODIUM CHLORIDE
  8. MAGNESIUM OXIDE. [Concomitant]
     Active Substance: MAGNESIUM OXIDE
  9. OXYCODONE [Concomitant]
     Active Substance: OXYCODONE
  10. SOTALOL. [Concomitant]
     Active Substance: SOTALOL
  11. VANCOMYCIN [Concomitant]
     Active Substance: VANCOMYCIN
  12. DIGOXIN. [Suspect]
     Active Substance: DIGOXIN
     Indication: ATRIAL FIBRILLATION
     Route: 048
     Dates: start: 20180401, end: 20180616
  13. CHLORHEXADINE [Concomitant]
     Active Substance: CHLORHEXIDINE
  14. GUAFENESIN [Concomitant]
     Active Substance: GUAIFENESIN
  15. APIXABAN [Concomitant]
     Active Substance: APIXABAN
  16. DIGOXIN. [Concomitant]
     Active Substance: DIGOXIN
  17. POLYETHYLENE GLYCOL 3350. [Concomitant]
     Active Substance: POLYETHYLENE GLYCOL 3350

REACTIONS (3)
  - Toxicity to various agents [None]
  - Human rhinovirus test positive [None]
  - Enterovirus test positive [None]

NARRATIVE: CASE EVENT DATE: 20180616
